FAERS Safety Report 7459922-X (Version None)
Quarter: 2011Q2

REPORT INFORMATION
  Report Type: 
  Country: None (occurrence: None)
  Receive Date: 20110504
  Receipt Date: 20110504
  Transmission Date: 20111010
  Serious: Yes (Disabling)
  Sender: FDA-Public Use
  Company Number: None

PATIENT
  Age: 47 Year
  Sex: Female
  Weight: 86.1834 kg

DRUGS (1)
  1. AVANDIA [Suspect]
     Indication: TYPE 2 DIABETES MELLITUS
     Dosage: DAILY
     Dates: start: 19970101

REACTIONS (4)
  - HEART RATE IRREGULAR [None]
  - DYSPNOEA [None]
  - CHEST PAIN [None]
  - MALAISE [None]
